FAERS Safety Report 5552271-6 (Version None)
Quarter: 2007Q4

REPORT INFORMATION
  Report Type: 
  Country: None (occurrence: None)
  Receive Date: 20071210
  Receipt Date: 20071123
  Transmission Date: 20080405
  Serious: Yes (Hospitalization)
  Sender: FDA-Public Use
  Company Number: CIP07002541

PATIENT
  Age: 74 Year
  Sex: Female

DRUGS (3)
  1. MACRODANTIN [Suspect]
     Indication: URINARY TRACT INFECTION
     Dosage: 100 MG, ORAL
     Route: 048
     Dates: start: 20070703
  2. PREMARIN [Concomitant]
  3. NEXIUM /01479302/ (ESOMEPRAZOLE MAGNEISUM) [Concomitant]

REACTIONS (27)
  - ALOPECIA [None]
  - ANAEMIA [None]
  - ATRIAL FIBRILLATION [None]
  - BLINDNESS UNILATERAL [None]
  - CARDIAC DISORDER [None]
  - CHILLS [None]
  - DEHYDRATION [None]
  - FAECAL INCONTINENCE [None]
  - FEELING COLD [None]
  - GAIT DISTURBANCE [None]
  - HYPERTENSION [None]
  - HYPOAESTHESIA [None]
  - HYPOKALAEMIA [None]
  - INCOHERENT [None]
  - MAGNESIUM DEFICIENCY [None]
  - MALAISE [None]
  - NAUSEA [None]
  - NIGHT SWEATS [None]
  - PNEUMONIA [None]
  - PRURITUS [None]
  - PYREXIA [None]
  - SKIN DISCOLOURATION [None]
  - SKIN EXFOLIATION [None]
  - TREMOR [None]
  - URINARY INCONTINENCE [None]
  - VOMITING [None]
  - WHITE BLOOD CELL COUNT DECREASED [None]
